FAERS Safety Report 7767141-2 (Version None)
Quarter: 2011Q3

REPORT INFORMATION
  Report Type: 
  Country: None (occurrence: None)
  Receive Date: 20110922
  Receipt Date: 20110413
  Transmission Date: 20111222
  Serious: No
  Sender: FDA-Public Use
  Company Number: US-ASTRAZENECA-2011SE21234

PATIENT
  Age: 48 Year
  Sex: Female

DRUGS (2)
  1. SEROQUEL XR [Suspect]
     Indication: BIPOLAR I DISORDER
     Route: 048
     Dates: end: 20110412
  2. LORAZEPAM [Concomitant]

REACTIONS (8)
  - WRONG DRUG ADMINISTERED [None]
  - DRUG DOSE OMISSION [None]
  - DEPRESSION [None]
  - PHOTOSENSITIVITY REACTION [None]
  - INSOMNIA [None]
  - PARAESTHESIA [None]
  - HYPERACUSIS [None]
  - DRUG DISPENSING ERROR [None]
